FAERS Safety Report 8920522 (Version 1)
Quarter: 2012Q4

REPORT INFORMATION
  Report Type: 
  Country: FR (occurrence: FR)
  Receive Date: 20121121
  Receipt Date: 20121121
  Transmission Date: 20130627
  Serious: Yes (Hospitalization, Other)
  Sender: FDA-Public Use
  Company Number: FR-ABBOTT-12P-056-1009140-00

PATIENT
  Age: 45 Year
  Sex: Female

DRUGS (8)
  1. NORVIR [Suspect]
     Indication: HIV INFECTION
     Dates: start: 20090505, end: 20120425
  2. REYATAZ [Suspect]
     Indication: HIV INFECTION
     Route: 048
     Dates: start: 20090505, end: 20120425
  3. REYATAZ [Suspect]
  4. TRUVADA [Concomitant]
     Indication: HIV INFECTION
     Route: 048
     Dates: start: 20090331, end: 20090401
  5. TRUVADA [Concomitant]
     Dates: start: 20090505, end: 20120425
  6. TRUVADA [Concomitant]
     Dates: start: 20120425
  7. VIRAMUNE [Concomitant]
     Indication: PRODUCT USED FOR UNKNOWN INDICATION
     Dates: start: 20060516, end: 20061024
  8. VIRAMUNE [Concomitant]
     Dates: start: 20120425

REACTIONS (5)
  - Renal colic [Recovered/Resolved]
  - Renal colic [Recovered/Resolved]
  - Back pain [Unknown]
  - Diarrhoea [Unknown]
  - Insomnia [Unknown]
